FAERS Safety Report 9439319 (Version 1)
Quarter: 2013Q3

REPORT INFORMATION
  Report Type: Spontaneous
  Country: US (occurrence: US)
  Receive Date: 20130804
  Receipt Date: 20130804
  Transmission Date: 20140515
  Serious: No
  Sender: FDA-Public Use
  Company Number: US-009507513-1307USA005720

PATIENT
  Sex: 0

DRUGS (1)
  1. SAPHRIS [Suspect]
     Dosage: 10 MG IN THE MORNING AND 10 MG AT NIGHT

REACTIONS (3)
  - Feeling abnormal [Unknown]
  - Dysgeusia [Unknown]
  - Hypoaesthesia oral [Unknown]
